FAERS Safety Report 8846150 (Version 2)
Quarter: 2012Q4

REPORT INFORMATION
  Report Type: 
  Country: NL (occurrence: NL)
  Receive Date: 20121017
  Receipt Date: 20121204
  Transmission Date: 20130627
  Serious: No
  Sender: FDA-Public Use
  Company Number: NL-ACTELION-A-CH2012-72749

PATIENT
  Age: 25 Year
  Sex: Female

DRUGS (1)
  1. TRACLEER [Suspect]
     Indication: DIGITAL ULCER
     Dosage: 125 mg, bid
     Route: 048
     Dates: start: 20081105, end: 20120828

REACTIONS (3)
  - Pregnancy [Unknown]
  - Pregnancy on oral contraceptive [None]
  - Maternal exposure during pregnancy [None]
